FAERS Safety Report 6943321-0 (Version None)
Quarter: 2010Q3

REPORT INFORMATION
  Report Type: 
  Country: None (occurrence: None)
  Receive Date: 20100826
  Receipt Date: 20100820
  Transmission Date: 20110219
  Serious: Yes (Other)
  Sender: FDA-Public Use
  Company Number: US-PFIZER INC-2010105244

PATIENT
  Sex: Male

DRUGS (7)
  1. ATARAX [Suspect]
     Indication: FOLLICULITIS
     Dosage: 25 MG, 1X/DAY
     Route: 048
     Dates: start: 20100710
  2. AMOXICILLIN [Suspect]
     Indication: FOLLICULITIS
     Dosage: 500 MG, 2X/DAY
     Route: 048
     Dates: start: 20100710
  3. XYREM [Suspect]
     Indication: NARCOLEPSY
     Dosage: TWICE NIGHTLY
     Route: 048
     Dates: start: 20091201
  4. XYREM [Suspect]
     Indication: SLEEP APNOEA SYNDROME
  5. LAMOTRIGINE [Concomitant]
  6. ESCITALOPRAM OXALATE [Concomitant]
  7. ARIPIPRAZOLE [Concomitant]

REACTIONS (2)
  - DEPRESSION [None]
  - MOOD ALTERED [None]
